FAERS Safety Report 8443958-6 (Version None)
Quarter: 2012Q2

REPORT INFORMATION
  Report Type: 
  Country: None (occurrence: None)
  Receive Date: 20120618
  Receipt Date: 20120611
  Transmission Date: 20120825
  Serious: Yes (Hospitalization)
  Sender: FDA-Public Use
  Company Number: US-BAYER-2012-059459

PATIENT
  Age: 37 Year
  Sex: Female

DRUGS (5)
  1. YAZ [Suspect]
  2. LAMISIL [Concomitant]
     Dosage: UNK
     Dates: start: 20090218
  3. SYMBICORT [Concomitant]
     Dosage: UNK
     Dates: start: 20090218
  4. YASMIN [Suspect]
  5. ALBUTEROL SULATE [Concomitant]
     Dosage: 2.5MG/3 ML
     Dates: start: 20090218

REACTIONS (2)
  - PULMONARY EMBOLISM [None]
  - DEEP VEIN THROMBOSIS [None]
